FAERS Safety Report 8162082-3 (Version None)
Quarter: 2012Q1

REPORT INFORMATION
  Report Type: 
  Country: None (occurrence: None)
  Receive Date: 20120224
  Receipt Date: 20110825
  Transmission Date: 20120608
  Serious: No
  Sender: FDA-Public Use
  Company Number: US-BRISTOL-MYERS SQUIBB COMPANY-15973571

PATIENT
  Sex: Male

DRUGS (3)
  1. APIDRA [Suspect]
     Dosage: INJ,SOLUTION. 1DF=100 IU/ML
     Route: 058
  2. METFORMIN HCL [Suspect]
  3. LANTUS [Suspect]
     Dosage: INJ,SOLUTION. 1DF=100 IU/ML
     Route: 058
     Dates: start: 20110101

REACTIONS (1)
  - BLOOD GLUCOSE INCREASED [None]
